FAERS Safety Report 8362226-4 (Version None)
Quarter: 2012Q2

REPORT INFORMATION
  Report Type: 
  Country: None (occurrence: None)
  Receive Date: 20120515
  Receipt Date: 20120508
  Transmission Date: 20120825
  Serious: Yes (Hospitalization)
  Sender: FDA-Public Use
  Company Number: JP-ALLERGAN-1205640US

PATIENT
  Age: 63 Year
  Sex: Female

DRUGS (4)
  1. BOTOX [Suspect]
     Indication: MUSCLE SPASMS
     Dosage: 250 UNITS, SINGLE
     Route: 030
     Dates: start: 20111118, end: 20111118
  2. ZONISAMIDE [Concomitant]
     Indication: PRODUCT USED FOR UNKNOWN INDICATION
     Dosage: 100 MG, BID
     Route: 048
  3. DANTRIUM [Concomitant]
     Indication: PRODUCT USED FOR UNKNOWN INDICATION
     Dosage: 25 MG, TID
     Route: 048
  4. DEPAKENE [Concomitant]
     Indication: PRODUCT USED FOR UNKNOWN INDICATION
     Dosage: 200 MG, TID
     Route: 048

REACTIONS (1)
  - MUSCLE SPASMS [None]
